FAERS Safety Report 5131991-1 (Version None)
Quarter: 2006Q4

REPORT INFORMATION
  Report Type: 
  Country: None (occurrence: None)
  Receive Date: 20061017
  Receipt Date: 20060714
  Transmission Date: 20070319
  Serious: Yes (Hospitalization, Other)
  Sender: FDA-Public Use
  Company Number: 2006080296

PATIENT
  Age: 50 Year
  Sex: Male
  Weight: 144.6975 kg

DRUGS (6)
  1. BEXTRA [Suspect]
     Indication: PSORIATIC ARTHROPATHY
     Dosage: 40 MG (20 MG, 2 IN 1 D), ORAL
     Route: 048
     Dates: start: 20030101
  2. MICARDIS HCT [Concomitant]
  3. ARAVA [Concomitant]
  4. HUMIRA [Concomitant]
  5. GLUCOPHAGE [Concomitant]
  6. FOLIC ACID [Concomitant]

REACTIONS (6)
  - ATRIAL FIBRILLATION [None]
  - CARDIAC ARREST [None]
  - CORONARY ARTERIAL STENT INSERTION [None]
  - CORONARY ARTERY DISEASE [None]
  - CORONARY ARTERY OCCLUSION [None]
  - MYOCARDIAL INFARCTION [None]
